FAERS Safety Report 23284280 (Version 3)
Quarter: 2023Q4

REPORT INFORMATION
  Report Type: Spontaneous
  Country: US (occurrence: US)
  Receive Date: 20231211
  Receipt Date: 20231218
  Transmission Date: 20240110
  Serious: Yes (Death, Other)
  Sender: FDA-Public Use
  Company Number: US-GILEAD-2023-0654520

PATIENT
  Age: 72 Year
  Sex: Male

DRUGS (2)
  1. YESCARTA [Suspect]
     Active Substance: AXICABTAGENE CILOLEUCEL
     Indication: Diffuse large B-cell lymphoma
     Dosage: 2X10E6
     Route: 042
     Dates: start: 20231130
  2. YESCARTA [Suspect]
     Active Substance: AXICABTAGENE CILOLEUCEL
     Dosage: 2X10E6
     Dates: start: 20231130, end: 20231211

REACTIONS (5)
  - Gastrointestinal haemorrhage [Fatal]
  - Immune effector cell-associated neurotoxicity syndrome [Fatal]
  - Seizure [Fatal]
  - Hypotension [Fatal]
  - Thrombocytopenia [Unknown]

NARRATIVE: CASE EVENT DATE: 20231204
